FAERS Safety Report 25466596 (Version 1)
Quarter: 2025Q2

REPORT INFORMATION
  Report Type: Spontaneous
  Country: GB (occurrence: AU)
  Receive Date: 20250623
  Receipt Date: 20250623
  Transmission Date: 20250716
  Serious: Yes (Congenital Anomaly, Other)
  Sender: SANDOZ
  Company Number: AU-ASPEN-AUS2024AU003814

PATIENT

DRUGS (10)
  1. CLOBAZAM [Suspect]
     Active Substance: CLOBAZAM
     Indication: Product used for unknown indication
     Route: 064
  2. LACOSAMIDE [Suspect]
     Active Substance: LACOSAMIDE
     Indication: Product used for unknown indication
     Route: 065
  3. LEVETIRACETAM [Suspect]
     Active Substance: LEVETIRACETAM
     Indication: Product used for unknown indication
     Route: 064
  4. LAMOTRIGINE [Suspect]
     Active Substance: LAMOTRIGINE
     Indication: Product used for unknown indication
     Route: 064
  5. PHENOBARBITAL [Suspect]
     Active Substance: PHENOBARBITAL
     Route: 064
  6. PHENOBARBITAL [Suspect]
     Active Substance: PHENOBARBITAL
     Indication: Product used for unknown indication
     Route: 064
  7. PHENYTOIN [Suspect]
     Active Substance: PHENYTOIN
     Route: 064
  8. PHENYTOIN [Suspect]
     Active Substance: PHENYTOIN
     Indication: Product used for unknown indication
     Route: 064
  9. ZONISAMIDE [Suspect]
     Active Substance: ZONISAMIDE
     Route: 064
  10. ZONISAMIDE [Suspect]
     Active Substance: ZONISAMIDE
     Indication: Product used for unknown indication
     Route: 064

REACTIONS (5)
  - Cleft palate [Unknown]
  - Congenital aplasia [Unknown]
  - Foetal malformation [Unknown]
  - Spina bifida [Unknown]
  - Foetal exposure during pregnancy [Unknown]
